FAERS Safety Report 9940761 (Version 2)
Quarter: 2014Q2

REPORT INFORMATION
  Report Type: Spontaneous
  Country: US (occurrence: US)
  Receive Date: 20140303
  Receipt Date: 20140417
  Transmission Date: 20141212
  Serious: No
  Sender: FDA-Public Use
  Company Number: US-PFIZER INC-2014059448

PATIENT
  Age: 78 Year
  Sex: Female
  Weight: 58.05 kg

DRUGS (2)
  1. LIPITOR [Suspect]
     Indication: BLOOD CHOLESTEROL ABNORMAL
     Dosage: 10 MG, DAILY
     Dates: start: 201302
  2. ATORVASTATIN [Suspect]
     Dosage: TABS

REACTIONS (1)
  - Weight increased [Not Recovered/Not Resolved]
